FAERS Safety Report 6715915-9 (Version None)
Quarter: 2010Q2

REPORT INFORMATION
  Report Type: 
  Country: None (occurrence: None)
  Receive Date: 20100507
  Receipt Date: 20100504
  Transmission Date: 20101027
  Serious: Yes (Death)
  Sender: FDA-Public Use
  Company Number: PHHY2010SI28683

PATIENT
  Age: 88 Year
  Sex: Female

DRUGS (6)
  1. EXELON [Suspect]
     Indication: DEMENTIA ALZHEIMER'S TYPE
     Dosage: 4.6 MG, QD
     Route: 062
     Dates: start: 20081201
  2. EXELON [Suspect]
     Dosage: 9.5 MG, QD
     Dates: end: 20090404
  3. ZOLPIDEM [Concomitant]
     Dosage: 10 MG
  4. NAKLOFEN [Concomitant]
  5. ENAP [Concomitant]
     Dosage: 2X10 MG
  6. LASIX [Concomitant]
     Dosage: HALF TABLET

REACTIONS (1)
  - DEATH [None]
